FAERS Safety Report 4287473-2 (Version None)
Quarter: 2004Q1

REPORT INFORMATION
  Report Type: 
  Country: None (occurrence: None)
  Receive Date: 20040209
  Receipt Date: 20030622
  Transmission Date: 20041129
  Serious: No
  Sender: FDA-Public Use
  Company Number: US-GLAXOSMITHKLINE-A0415404A

PATIENT
  Age: 47 Year
  Sex: Female
  Weight: 70.5 kg

DRUGS (1)
  1. PAXIL CR [Suspect]
     Route: 048
     Dates: start: 20030601

REACTIONS (6)
  - ABDOMINAL DISCOMFORT [None]
  - DIARRHOEA [None]
  - DYSPEPSIA [None]
  - HEADACHE [None]
  - NAUSEA [None]
  - YAWNING [None]
